FAERS Safety Report 10262516 (Version 1)
Quarter: 2014Q2

REPORT INFORMATION
  Report Type: Spontaneous
  Country: FR (occurrence: FR)
  Receive Date: 20140626
  Receipt Date: 20140626
  Transmission Date: 20141212
  Serious: Yes (Other)
  Sender: FDA-Public Use
  Company Number: FR-UCBSA-2014003308

PATIENT
  Age: 54 Year
  Sex: Male

DRUGS (3)
  1. CIMZIA [Suspect]
     Indication: RHEUMATOID ARTHRITIS
  2. METHOTREXATE [Concomitant]
     Dosage: 20 MG, WEEKLY (QW)
  3. PREDNISOLONE [Concomitant]

REACTIONS (1)
  - Infectious colitis [Recovered/Resolved]
